FAERS Safety Report 17136630 (Version 1)
Quarter: 2019Q4

REPORT INFORMATION
  Report Type: Spontaneous
  Country: NZ (occurrence: NZ)
  Receive Date: 20191210
  Receipt Date: 20191210
  Transmission Date: 20200122
  Serious: Yes (Other)
  Sender: FDA-Public Use
  Company Number: NZ-ELI_LILLY_AND_COMPANY-NZ201911012512

PATIENT
  Age: 75 Year
  Sex: Female

DRUGS (9)
  1. DIAMIDE [LOPERAMIDE HYDROCHLORIDE] [Concomitant]
     Dosage: 1 DOSAGE FORM, PRN
  2. ZOPICLONE [Concomitant]
     Active Substance: ZOPICLONE
     Dosage: 1 DOSAGE FORM, DAILY
  3. ZYPREXA RELPREVV [Suspect]
     Active Substance: OLANZAPINE PAMOATE
     Indication: PRODUCT USED FOR UNKNOWN INDICATION
     Dosage: UNK, UNKNOWN
     Route: 065
  4. KEMADRIN [Concomitant]
     Active Substance: PROCYCLIDINE HYDROCHLORIDE
     Dosage: 1 DOSAGE FORM, BID
  5. MVITE [Concomitant]
     Dosage: 1 DOSAGE FORM, DAILY
  6. ATIVAN [Concomitant]
     Active Substance: LORAZEPAM
     Dosage: 1 DOSAGE FORM, TID
  7. ZOPICLONE [Concomitant]
     Active Substance: ZOPICLONE
     Dosage: 2 DOSAGE FORM, EACH EVENING
  8. PARACETAMOL [Concomitant]
     Active Substance: ACETAMINOPHEN
     Dosage: 2 DOSAGE FORM, DAILY
  9. PARACETAMOL/CODEINE [Concomitant]
     Active Substance: ACETAMINOPHEN\CODEINE PHOSPHATE
     Dosage: 2 DOSAGE FORM, BID

REACTIONS (4)
  - Sedation [Unknown]
  - Blood pressure increased [Unknown]
  - Heart rate increased [Unknown]
  - Immediate post-injection reaction [Unknown]

NARRATIVE: CASE EVENT DATE: 20191106
